FAERS Safety Report 12380878 (Version 1)
Quarter: 2016Q2

REPORT INFORMATION
  Report Type: Spontaneous
  Country: US (occurrence: None)
  Receive Date: 20160517
  Receipt Date: 20160517
  Transmission Date: 20160815
  Serious: No
  Sender: FDA-Public Use
  Company Number: None

PATIENT
  Age: 59 Year
  Sex: Female
  Weight: 55.34 kg

DRUGS (3)
  1. C-NALTREXONE, 2.5 MG [Suspect]
     Active Substance: NALTREXONE
     Indication: FIBROMYALGIA
     Route: 048
  2. C-NALTREXONE, 2.5 MG [Suspect]
     Active Substance: NALTREXONE
     Indication: INSOMNIA
     Route: 048
  3. C-NALTREXONE, 2.5 MG [Suspect]
     Active Substance: NALTREXONE
     Indication: FATIGUE
     Route: 048

REACTIONS (1)
  - Nightmare [None]

NARRATIVE: CASE EVENT DATE: 20160506
